FAERS Safety Report 7020338-1 (Version None)
Quarter: 2010Q3

REPORT INFORMATION
  Report Type: 
  Country: None (occurrence: None)
  Receive Date: 20100929
  Receipt Date: 20100923
  Transmission Date: 20110219
  Serious: Yes (Other)
  Sender: FDA-Public Use
  Company Number: US-BAYER-201020629BCC

PATIENT
  Age: 72 Year
  Sex: Female
  Weight: 79 kg

DRUGS (6)
  1. ASPIRIN [Suspect]
     Indication: PHARYNGITIS STREPTOCOCCAL
     Route: 048
     Dates: start: 19650101
  2. ASPIRIN [Suspect]
     Route: 048
     Dates: start: 20090101, end: 20090101
  3. DILTIAZEM HCL CD [Concomitant]
  4. LISINOPRIL [Concomitant]
  5. ASPIRIN [Concomitant]
  6. RANITIDINE [Concomitant]

REACTIONS (3)
  - ABDOMINAL PAIN UPPER [None]
  - FAECES DISCOLOURED [None]
  - GASTRIC HAEMORRHAGE [None]
